FAERS Safety Report 10410285 (Version 1)
Quarter: 2014Q3

REPORT INFORMATION
  Report Type: Report from Study
  Country: CA (occurrence: CA)
  Receive Date: 20140826
  Receipt Date: 20140826
  Transmission Date: 20150326
  Serious: Yes (Hospitalization)
  Sender: FDA-Public Use
  Company Number: CA-JNJFOC-20140822179

PATIENT
  Age: 60 Year
  Sex: Female
  Weight: 75.7 kg

DRUGS (1)
  1. REMICADE [Suspect]
     Active Substance: INFLIXIMAB
     Indication: PRODUCT USED FOR UNKNOWN INDICATION
     Route: 042
     Dates: start: 20090716, end: 20140704

REACTIONS (2)
  - Neoplasm malignant [Unknown]
  - Lymphoma [Unknown]

NARRATIVE: CASE EVENT DATE: 20140726
